FAERS Safety Report 10762664 (Version 2)
Quarter: 2015Q1

REPORT INFORMATION
  Report Type: Spontaneous
  Country: IN (occurrence: IN)
  Receive Date: 20150204
  Receipt Date: 20150212
  Transmission Date: 20150721
  Serious: Yes (Hospitalization, Other)
  Sender: FDA-Public Use
  Company Number: IN-AUROBINDO-AUR-APL-2015-00739

PATIENT
  Age: 50 Year
  Sex: Female

DRUGS (2)
  1. HYDROCHLOROTHIAZIDE 12.5 MG, HERITAGE PHARMACY [Suspect]
     Active Substance: HYDROCHLOROTHIAZIDE
     Indication: HYPERTENSION
     Dosage: 12.5 MG, UNK
     Route: 065
  2. RAMIPRIL. [Concomitant]
     Active Substance: RAMIPRIL
     Indication: HYPERTENSION
     Dosage: 5 MG, UNK
     Route: 065

REACTIONS (14)
  - Metabolic encephalopathy [Recovered/Resolved]
  - Disorientation [Recovered/Resolved]
  - Tremor [Recovered/Resolved]
  - Hyponatraemia [Recovered/Resolved]
  - Dyskinesia [Recovered/Resolved]
  - Vomiting [Recovered/Resolved]
  - Gait disturbance [Recovered/Resolved]
  - Somnolence [Recovered/Resolved]
  - Cogwheel rigidity [Recovered/Resolved]
  - Dysarthria [Recovered/Resolved]
  - Parkinson^s disease [Recovered/Resolved]
  - Mental status changes [Recovered/Resolved]
  - Osmotic demyelination syndrome [Recovered/Resolved]
  - Memory impairment [Recovered/Resolved]
